FAERS Safety Report 8388598-2 (Version None)
Quarter: 2012Q2

REPORT INFORMATION
  Report Type: 
  Country: None (occurrence: None)
  Receive Date: 20120525
  Receipt Date: 20120522
  Transmission Date: 20120825
  Serious: No
  Sender: FDA-Public Use
  Company Number: US-PFIZER INC-2012091322

PATIENT
  Age: 68 Year
  Sex: Male
  Weight: 97.5 kg

DRUGS (2)
  1. VIAGRA [Suspect]
     Indication: ERECTILE DYSFUNCTION
  2. VIAGRA [Suspect]
     Indication: SEXUAL DYSFUNCTION
     Dosage: 100 MG, HALF TABLET AS NEEDED
     Route: 048

REACTIONS (2)
  - HEADACHE [None]
  - DRUG INTOLERANCE [None]
